FAERS Safety Report 21243566 (Version 1)
Quarter: 2022Q3

REPORT INFORMATION
  Report Type: Spontaneous
  Country: IT (occurrence: IT)
  Receive Date: 20220823
  Receipt Date: 20220823
  Transmission Date: 20221027
  Serious: Yes (Life-Threatening, Other)
  Sender: FDA-Public Use
  Company Number: IT-PFIZER INC-PV202200041484

PATIENT
  Age: 69 Year
  Sex: Male

DRUGS (2)
  1. EPIRUBICIN HYDROCHLORIDE [Suspect]
     Active Substance: EPIRUBICIN HYDROCHLORIDE
     Indication: Leiomyosarcoma
     Dosage: 60 MG/M2, ON DAYS 1 AND 2 (FOUR CYCLES)
     Route: 042
     Dates: start: 200201
  2. IFOSFAMIDE [Suspect]
     Active Substance: IFOSFAMIDE
     Indication: Leiomyosarcoma
     Dosage: 3 G/M2 ON DAYS 1-3 (FOUR CYCLES)
     Route: 042
     Dates: start: 200201

REACTIONS (4)
  - Thrombocytopenia [Unknown]
  - Neutropenia [Unknown]
  - Anaemia [Unknown]
  - Mucosal inflammation [Unknown]
